FAERS Safety Report 18369587 (Version 2)
Quarter: 2022Q4

REPORT INFORMATION
  Report Type: Spontaneous
  Country: US (occurrence: US)
  Receive Date: 20201012
  Receipt Date: 20221012
  Transmission Date: 20230112
  Serious: Yes (Other)
  Sender: FDA-Public Use
  Company Number: US-CELLTRION INC.-2019US026654

PATIENT

DRUGS (7)
  1. INFLECTRA [Suspect]
     Active Substance: INFLIXIMAB-DYYB
     Indication: Colitis ulcerative
     Dosage: 400MG INTRAVENOUS INFUSION ADMINISTERED OVER 3 HOURS (5MG/KG DOSING)
     Route: 042
     Dates: start: 20190925, end: 20190925
  2. PREDNISONE [Concomitant]
     Active Substance: PREDNISONE
     Indication: Product used for unknown indication
     Dosage: 10MG TABLET TAKEN BY MOUTH ONCE DAILY, TAPERED 14 DAY DOSE
     Route: 048
  3. RESTORIL [Concomitant]
     Active Substance: TEMAZEPAM
     Indication: Sleep disorder
     Dosage: 15MG CAPSULE-1-2 CAPSULES TAKEN BY MOUTH AT BEDTIME
     Route: 048
  4. LIALDA [Concomitant]
     Active Substance: MESALAMINE
     Indication: Product used for unknown indication
     Dosage: 0.2 GRAM TABLET-4 TABLETS TAKEN BY MOUTH ONCE DAILY
     Route: 048
  5. LYRICA [Concomitant]
     Active Substance: PREGABALIN
     Indication: Neuropathy peripheral
     Dosage: 150MG CAPSULE TAKEN BY MOUTH 3 TIMES DAILY
  6. ZOCOR [Concomitant]
     Active Substance: SIMVASTATIN
     Indication: Blood cholesterol
     Dosage: 40MG TABLET TAKEN BY MOUTH ONCE DAILY
     Route: 048
  7. COZAAR [Concomitant]
     Active Substance: LOSARTAN POTASSIUM
     Indication: Hypertension
     Dosage: 25MG (1/2 TABLET) TAKEN BY MOUTH ONCE DAILY
     Route: 048

REACTIONS (3)
  - Neuropathy peripheral [Recovered/Resolved]
  - Impaired work ability [Unknown]
  - Overdose [Unknown]
